FAERS Safety Report 9804021 (Version 1)
Quarter: 2014Q1

REPORT INFORMATION
  Report Type: Spontaneous
  Country: GB (occurrence: GB)
  Receive Date: 20140108
  Receipt Date: 20140108
  Transmission Date: 20141002
  Serious: Yes (Hospitalization)
  Sender: FDA-Public Use
  Company Number: GB-PFIZER INC-2014004311

PATIENT
  Age: 64 Year
  Sex: Female
  Weight: 93 kg

DRUGS (7)
  1. AMLODIPINE BESILATE [Suspect]
     Indication: HYPERTENSION
     Dosage: 10 MG, UNK
     Route: 048
  2. ACETYLSALICYLIC ACID [Concomitant]
     Dosage: UNK
  3. SALBUTAMOL [Concomitant]
     Dosage: UNK
  4. SERETIDE [Concomitant]
     Dosage: UNK
  5. OMEPRAZOLE [Concomitant]
     Dosage: UNK
  6. NICORANDIL [Concomitant]
     Dosage: UNK
  7. ATORVASTATIN [Concomitant]
     Dosage: UNK

REACTIONS (1)
  - Urosepsis [Recovered/Resolved]
